FAERS Safety Report 21119859 (Version 1)
Quarter: 2022Q3

REPORT INFORMATION
  Report Type: Spontaneous
  Country: IT (occurrence: IT)
  Receive Date: 20220722
  Receipt Date: 20220722
  Transmission Date: 20221026
  Serious: Yes (Hospitalization, Other)
  Sender: FDA-Public Use
  Company Number: IT-PFIZER INC-PV202200016041

PATIENT
  Age: 19 Year
  Sex: Male

DRUGS (10)
  1. DIAZEPAM [Suspect]
     Active Substance: DIAZEPAM
     Indication: Detoxification
     Dosage: UNK
  2. PREGABALIN [Suspect]
     Active Substance: PREGABALIN
     Indication: Detoxification
     Dosage: 450-600MG/DAY
  3. BUPROPION [Suspect]
     Active Substance: BUPROPION
     Indication: Detoxification
     Dosage: UNK
  4. CHLORDIAZEPOXIDE [Suspect]
     Active Substance: CHLORDIAZEPOXIDE
     Indication: Detoxification
     Dosage: UNK
  5. BACLOFEN [Suspect]
     Active Substance: BACLOFEN
     Indication: Product used for unknown indication
     Route: 050
  6. 4-AMINO-3-PHENYLBUTYRIC ACID [Suspect]
     Active Substance: 4-AMINO-3-PHENYLBUTYRIC ACID
     Indication: Product used for unknown indication
  7. METHYLPHENIDATE [Suspect]
     Active Substance: METHYLPHENIDATE
     Indication: Product used for unknown indication
  8. PREGABALIN [Suspect]
     Active Substance: PREGABALIN
     Indication: Detoxification
  9. AMITRIPTYLINE [Concomitant]
     Active Substance: AMITRIPTYLINE
     Indication: Product used for unknown indication
  10. OLANZAPINE [Concomitant]
     Active Substance: OLANZAPINE
     Indication: Product used for unknown indication

REACTIONS (10)
  - Off label use [Unknown]
  - Drug ineffective for unapproved indication [Unknown]
  - Confusional state [Unknown]
  - Substance abuse [Unknown]
  - Drug withdrawal syndrome [Unknown]
  - Poisoning [Unknown]
  - Coma [Unknown]
  - Urinary retention [Unknown]
  - Seizure [Unknown]
  - Depression [Unknown]
